FAERS Safety Report 25655461 (Version 1)
Quarter: 2025Q3

REPORT INFORMATION
  Report Type: Other
  Country: CA (occurrence: CA)
  Receive Date: 20250807
  Receipt Date: 20250807
  Transmission Date: 20251020
  Serious: Yes (Hospitalization, Other)
  Sender: APOTEX
  Company Number: CA-PGRTD-001147620

PATIENT
  Age: 91 Year
  Sex: Female

DRUGS (19)
  1. AMOXICILLIN\CLAVULANATE POTASSIUM [Suspect]
     Active Substance: AMOXICILLIN\CLAVULANATE POTASSIUM
     Indication: Limb injury
     Route: 048
  2. ACETAMINOPHEN [Concomitant]
     Active Substance: ACETAMINOPHEN
     Route: 065
  3. AMIODARONE [Concomitant]
     Active Substance: AMIODARONE
     Route: 065
  4. DICLOFENAC [Concomitant]
     Active Substance: DICLOFENAC
  5. DILTIAZEM [Concomitant]
     Active Substance: DILTIAZEM
     Route: 065
  6. FUROSEMIDE [Concomitant]
     Active Substance: FUROSEMIDE
     Route: 065
  7. GABAPENTIN [Concomitant]
     Active Substance: GABAPENTIN
     Route: 065
  8. LANSOPRAZOLE [Concomitant]
     Active Substance: LANSOPRAZOLE
     Route: 065
  9. LATANOPROST\TIMOLOL [Concomitant]
     Active Substance: LATANOPROST\TIMOLOL
     Route: 065
  10. METFORMIN [Concomitant]
     Active Substance: METFORMIN HYDROCHLORIDE
     Route: 065
  11. PERINDOPRIL [Concomitant]
     Active Substance: PERINDOPRIL
     Route: 065
  12. ELIQUIS [Concomitant]
     Active Substance: APIXABAN
     Route: 065
  13. FERROUS SULFATE [Concomitant]
     Active Substance: FERROUS SULFATE
     Route: 065
  14. VITAMINS NOS [Concomitant]
     Active Substance: VITAMINS
     Route: 065
  15. POTASSIUM [Concomitant]
     Active Substance: POTASSIUM
     Route: 065
  16. PROBIOTICS NOS [Concomitant]
     Active Substance: PROBIOTICS NOS
     Route: 065
  17. CYANOCOBALAMIN [Concomitant]
     Active Substance: CYANOCOBALAMIN
     Route: 065
  18. VITAMIN C [Concomitant]
     Active Substance: ASCORBIC ACID
     Route: 065
  19. ZINC GLUCONATE [Concomitant]
     Active Substance: ZINC GLUCONATE
     Route: 065

REACTIONS (4)
  - Dehydration [Recovering/Resolving]
  - Neutrophil count increased [Recovering/Resolving]
  - Delirium [Recovering/Resolving]
  - Clostridium difficile colitis [Recovering/Resolving]
